FAERS Safety Report 22989940 (Version 2)
Quarter: 2023Q4

REPORT INFORMATION
  Report Type: Report from Study
  Country: JP (occurrence: JP)
  Receive Date: 20230927
  Receipt Date: 20231002
  Transmission Date: 20240110
  Serious: Yes (Other)
  Sender: FDA-Public Use
  Company Number: JPN-GW00994-2023-GWEP19186 - CANNABIDIOL IN LGS DS OR TSC000001

PATIENT
  Age: 12 Year
  Sex: Male
  Weight: 15 kg

DRUGS (16)
  1. EPIDIOLEX [Suspect]
     Active Substance: CANNABIDIOL
     Dosage: 5 MILLIGRAM/KILOGRAM, QD
     Route: 048
     Dates: start: 20230822
  2. EPIDIOLEX [Suspect]
     Active Substance: CANNABIDIOL
     Dosage: 10 MILLIGRAM/KILOGRAM, QD
     Route: 048
     Dates: start: 20230830
  3. EPIDIOLEX [Suspect]
     Active Substance: CANNABIDIOL
     Dosage: 15 MILLIGRAM/KILOGRAM, QD
     Route: 048
     Dates: start: 20230906
  4. EPIDIOLEX [Suspect]
     Active Substance: CANNABIDIOL
     Dosage: 15 MILLIGRAM/KILOGRAM, QD
     Route: 048
     Dates: start: 20230913
  5. EPIDIOLEX [Suspect]
     Active Substance: CANNABIDIOL
     Dosage: 20 MILLIGRAM/KILOGRAM, QD
     Route: 048
     Dates: start: 20230919
  6. PRANLUKAST [Concomitant]
     Active Substance: PRANLUKAST
     Dosage: 80 MILLIGRAM, BID
     Route: 048
     Dates: start: 20150212
  7. LAMICTAL [Concomitant]
     Active Substance: LAMOTRIGINE
     Dosage: 25 MILLIGRAM, BID
     Route: 048
     Dates: start: 20150903
  8. MIYA-BM [Concomitant]
     Active Substance: CLOSTRIDIUM BUTYRICUM SPORES STRAIN M-55
     Dosage: 1.5 GRAM, TID
     Route: 048
     Dates: start: 20160522
  9. CHLORAL HYDRATE [Concomitant]
     Active Substance: CHLORAL HYDRATE
     Dosage: 500 MILLIGRAM
     Route: 054
     Dates: start: 20170518
  10. AMINO ACIDS\DEXTROSE\ELECTROLYTES NOS\SOYBEAN OIL\VITAMINS [Concomitant]
     Active Substance: AMINO ACIDS\DEXTROSE\ELECTROLYTES NOS\SOYBEAN OIL\VITAMINS
     Dosage: 300 GRAM, TID
     Route: 042
     Dates: start: 20200430
  11. AMINO ACIDS\DEXTROSE\ELECTROLYTES NOS\SOYBEAN OIL\VITAMINS [Concomitant]
     Active Substance: AMINO ACIDS\DEXTROSE\ELECTROLYTES NOS\SOYBEAN OIL\VITAMINS
     Dosage: 400 MILLILITER, 5 TIMES PER DAY
     Route: 042
     Dates: start: 20221205
  12. MIDAZOLAM HYDROCHLORIDE [Concomitant]
     Active Substance: MIDAZOLAM HYDROCHLORIDE
     Dosage: 7.5 MILLIGRAM
     Route: 048
     Dates: start: 20210719
  13. LEVOCARNITINE [Concomitant]
     Active Substance: LEVOCARNITINE
     Dosage: 2 MILLILITER, BID
     Route: 048
     Dates: start: 20210928
  14. INOVELON [Concomitant]
     Active Substance: RUFINAMIDE
     Dosage: 300 MILLIGRAM, BID
     Route: 048
     Dates: start: 20230213
  15. PHENOBARBITAL [Concomitant]
     Active Substance: PHENOBARBITAL
     Dosage: 20 MILLIGRAM, BID
     Route: 048
     Dates: start: 20230417
  16. MOSAPRIDE CITRATE [Concomitant]
     Active Substance: MOSAPRIDE CITRATE
     Indication: Prophylaxis
     Dosage: 5 MILLIGRAM, TID
     Route: 048
     Dates: start: 20230528

REACTIONS (1)
  - Liver function test increased [Not Recovered/Not Resolved]

NARRATIVE: CASE EVENT DATE: 20230919
